FAERS Safety Report 7522158-8 (Version None)
Quarter: 2011Q2

REPORT INFORMATION
  Report Type: 
  Country: None (occurrence: None)
  Receive Date: 20110603
  Receipt Date: 20110519
  Transmission Date: 20111010
  Serious: Yes (Hospitalization)
  Sender: FDA-Public Use
  Company Number: FR-BAYER-2011-045781

PATIENT
  Age: 3 Year
  Sex: Female

DRUGS (2)
  1. NAPROXEN SODIUM [Suspect]
     Indication: JUVENILE ARTHRITIS
     Dosage: UNK
     Route: 048
     Dates: start: 20100903
  2. METHOTREXATE [Suspect]
     Indication: JUVENILE ARTHRITIS
     Dosage: 7.5 MG, OW
     Route: 048
     Dates: start: 20100924

REACTIONS (4)
  - ARTHRALGIA [None]
  - INFLAMMATION [None]
  - PSOAS ABSCESS [None]
  - PYREXIA [None]
